FAERS Safety Report 9886962 (Version 1)
Quarter: 2014Q1

REPORT INFORMATION
  Report Type: Spontaneous
  Country: US (occurrence: US)
  Receive Date: 20140211
  Receipt Date: 20140211
  Transmission Date: 20141002
  Serious: No
  Sender: FDA-Public Use
  Company Number: US-009507513-1402USA003047

PATIENT
  Age: 37 Year
  Sex: Female
  Weight: 102.4 kg

DRUGS (4)
  1. NUVARING [Suspect]
     Indication: HORMONE THERAPY
     Route: 067
  2. LEXAPRO [Concomitant]
  3. ZOLOFT [Concomitant]
  4. CLONAZEPAM [Concomitant]

REACTIONS (2)
  - Dyspnoea [Unknown]
  - Headache [Unknown]
